FAERS Safety Report 24147110 (Version 1)
Quarter: 2024Q3

REPORT INFORMATION
  Report Type: Spontaneous
  Country: US (occurrence: None)
  Receive Date: 20240726
  Receipt Date: 20240726
  Transmission Date: 20241016
  Serious: Yes (Other)
  Sender: Public
  Company Number: None

PATIENT
  Age: 70 Year
  Sex: Male
  Weight: 83.25 kg

DRUGS (3)
  1. RABEPRAZOLE SODIUM [Suspect]
     Active Substance: RABEPRAZOLE SODIUM
     Indication: Gastrooesophageal reflux disease
     Dosage: 1 TABLET ORAL?
     Route: 048
  2. PANTOPRAZOLE [Suspect]
     Active Substance: PANTOPRAZOLE
  3. CETIRIZINE [Concomitant]

REACTIONS (8)
  - Neurological symptom [None]
  - Brain fog [None]
  - Dizziness [None]
  - Confusional state [None]
  - Dizziness [None]
  - Syncope [None]
  - Cognitive disorder [None]
  - Therapy cessation [None]

NARRATIVE: CASE EVENT DATE: 20240709
